FAERS Safety Report 9115812 (Version 1)
Quarter: 2013Q1

REPORT INFORMATION
  Report Type: Report from Study
  Country: US (occurrence: US)
  Receive Date: 20130224
  Receipt Date: 20130224
  Transmission Date: 20140127
  Serious: Yes (Hospitalization)
  Sender: FDA-Public Use
  Company Number: US-BRISTOL-MYERS SQUIBB COMPANY-16217077

PATIENT
  Age: 69 Year
  Sex: Male

DRUGS (15)
  1. IPILIMUMAB [Suspect]
     Indication: PROSTATE CANCER
     Dosage: ROUTE:2?COURSES:1; 208 ML TOTAL DOSE
     Dates: start: 20111004, end: 20111004
  2. ASPIRIN [Concomitant]
  3. CALCIUM + VITAMIN D [Concomitant]
  4. TOPROL XL [Concomitant]
  5. MULTIVITAMIN [Concomitant]
  6. FISH OIL [Concomitant]
  7. AMBIEN [Concomitant]
     Dosage: AT BEDTIME
  8. TYLENOL [Concomitant]
     Dosage: AS NECESSARY
  9. LOMOTIL [Concomitant]
     Dosage: TABLET?3 IN DAY
  10. ZOFRAN [Concomitant]
     Dosage: AS NECESSARY
     Route: 048
  11. ENALAPRIL MALEATE + HCTZ [Concomitant]
     Dosage: 1DF=10/25MG
  12. NIACIN [Concomitant]
  13. OXYCODONE [Concomitant]
     Indication: PAIN
     Dosage: AS NECESSARY
     Route: 048
  14. PREDNISONE [Concomitant]
     Route: 048
  15. OMEPRAZOLE [Concomitant]
     Dosage: AT BED TIME
     Route: 048

REACTIONS (12)
  - Colitis [Recovered/Resolved]
  - Diarrhoea [Recovered/Resolved]
  - Nausea [Recovered/Resolved]
  - Vomiting [Recovered/Resolved]
  - Ileus [Recovered/Resolved]
  - Dehydration [Recovered/Resolved]
  - Hypocalcaemia [Recovered/Resolved]
  - Hypokalaemia [Recovered/Resolved]
  - Hyponatraemia [Recovered/Resolved]
  - Hyperthyroidism [Recovered/Resolved]
  - Asthenia [Not Recovered/Not Resolved]
  - Anaemia [Not Recovered/Not Resolved]
